FAERS Safety Report 11922338 (Version 2)
Quarter: 2016Q1

REPORT INFORMATION
  Report Type: Report from Study
  Country: GB (occurrence: GB)
  Receive Date: 20160115
  Receipt Date: 20160119
  Transmission Date: 20160526
  Serious: Yes (Hospitalization, Other)
  Sender: FDA-Public Use
  Company Number: PHHY2016GB003386

PATIENT
  Age: 47 Year
  Sex: Male
  Weight: 76 kg

DRUGS (13)
  1. TOPIRAMATE. [Suspect]
     Active Substance: TOPIRAMATE
     Dosage: 1 DF, QD (UNKNOWN OVERDOSE, AS REPORTED)
     Route: 048
     Dates: start: 20151115, end: 20151115
  2. TOPIRAMATE. [Suspect]
     Active Substance: TOPIRAMATE
     Dosage: 200 MG, QD
     Route: 048
     Dates: start: 20151116
  3. FYCOMPA [Suspect]
     Active Substance: PERAMPANEL
     Dosage: 1 DF, QD (UNKNOWN OVERDOSE, AS REPORTED)
     Route: 048
     Dates: start: 20151115, end: 20151115
  4. DIAZEPAM. [Suspect]
     Active Substance: DIAZEPAM
     Indication: EPILEPSY
     Dosage: 7.5 MG, QD
     Route: 048
     Dates: start: 20030607, end: 20151114
  5. CITALOPRAM [Concomitant]
     Active Substance: CITALOPRAM HYDROBROMIDE
     Indication: PRODUCT USED FOR UNKNOWN INDICATION
     Dosage: 20 MG, QD
     Route: 048
     Dates: start: 20030607
  6. OXCARBAZEPINE. [Suspect]
     Active Substance: OXCARBAZEPINE
     Indication: EPILEPSY
     Dosage: 1800 MG, QD
     Route: 048
     Dates: start: 20110510, end: 20151114
  7. FYCOMPA [Suspect]
     Active Substance: PERAMPANEL
     Dosage: 4 MG, QD
     Route: 048
     Dates: start: 20151116, end: 20151216
  8. FYCOMPA [Suspect]
     Active Substance: PERAMPANEL
     Indication: EPILEPSY
     Dosage: 4 MG, QD
     Route: 048
     Dates: start: 20151104, end: 20151114
  9. TOPIRAMATE. [Suspect]
     Active Substance: TOPIRAMATE
     Indication: EPILEPSY
     Dosage: 200 MG, QD
     Route: 048
     Dates: start: 20030211, end: 20151114
  10. DIAZEPAM. [Suspect]
     Active Substance: DIAZEPAM
     Dosage: 7.5 MG, QD
     Route: 048
     Dates: start: 20151116
  11. OXCARBAZEPINE. [Suspect]
     Active Substance: OXCARBAZEPINE
     Dosage: 1 DF, QD (UNKNOWN OVERDOSE, AS REPORTED)
     Route: 048
     Dates: start: 20151115, end: 20151115
  12. OXCARBAZEPINE. [Suspect]
     Active Substance: OXCARBAZEPINE
     Dosage: 1800 MG, QD
     Route: 048
     Dates: start: 20151116
  13. DIAZEPAM. [Suspect]
     Active Substance: DIAZEPAM
     Dosage: 1 DF, QD (UNKNOWN OVERDOSE, AS REPORTED)
     Route: 048
     Dates: start: 20151115, end: 20151115

REACTIONS (3)
  - Intentional overdose [Recovered/Resolved]
  - Depressed mood [Not Recovered/Not Resolved]
  - Suicide attempt [Recovered/Resolved]

NARRATIVE: CASE EVENT DATE: 201511
